FAERS Safety Report 8478653 (Version 2)
Quarter: 2013Q3

REPORT INFORMATION
  Report Type: Report from Study
  Country: US (occurrence: US)
  Receive Date: 20120327
  Receipt Date: 20130708
  Transmission Date: 20140515
  Serious: Yes (Other)
  Sender: FDA-Public Use
  Company Number: US-ROCHE-1052341

PATIENT
  Age: 72 Year
  Sex: Female

DRUGS (2)
  1. LUCENTIS [Suspect]
     Indication: RETINAL TEAR
     Dosage: 2 AMPOULES
     Route: 050
     Dates: start: 2011, end: 20120227
  2. LUCENTIS [Suspect]
     Indication: DIABETIC RETINOPATHY

REACTIONS (4)
  - Blood glucose increased [Not Recovered/Not Resolved]
  - Visual impairment [Not Recovered/Not Resolved]
  - Visual acuity reduced [Unknown]
  - Eye haemorrhage [Unknown]
